FAERS Safety Report 8425805-1 (Version None)
Quarter: 2012Q2

REPORT INFORMATION
  Report Type: 
  Country: None (occurrence: None)
  Receive Date: 20120611
  Receipt Date: 20120601
  Transmission Date: 20120825
  Serious: Yes (Other)
  Sender: FDA-Public Use
  Company Number: US-ASTELLAS-2012US005266

PATIENT
  Sex: Male
  Weight: 95 kg

DRUGS (1)
  1. ERLOTINIB HYDROCHLORIDE [Suspect]
     Indication: NON-SMALL CELL LUNG CANCER
     Dosage: 150 MG, UID/QD
     Route: 048
     Dates: start: 20120413

REACTIONS (7)
  - DYSGEUSIA [None]
  - BLISTER [None]
  - COUGH [None]
  - FEELING HOT [None]
  - RASH [None]
  - PULMONARY OEDEMA [None]
  - EYE PRURITUS [None]
